FAERS Safety Report 6748480-0 (Version None)
Quarter: 2010Q2

REPORT INFORMATION
  Report Type: 
  Country: None (occurrence: None)
  Receive Date: 20100527
  Receipt Date: 20100527
  Transmission Date: 20101027
  Serious: No
  Sender: FDA-Public Use
  Company Number: None

PATIENT
  Age: 67 Year
  Sex: Male
  Weight: 86.1834 kg

DRUGS (1)
  1. TAMSULOSIN HCL [Suspect]
     Indication: BENIGN PROSTATIC HYPERPLASIA
     Dosage: 1 PO Q DAY 1 Q DAY ORAL
     Route: 048
     Dates: start: 20100301, end: 20100401

REACTIONS (1)
  - DYSURIA [None]
